FAERS Safety Report 6353761-9 (Version None)
Quarter: 2009Q3

REPORT INFORMATION
  Report Type: 
  Country: None (occurrence: None)
  Receive Date: 20090912
  Receipt Date: 20090622
  Transmission Date: 20100115
  Serious: No
  Sender: FDA-Public Use
  Company Number: US-ABBOTT-08P-163-0465092-00

PATIENT
  Sex: Male

DRUGS (3)
  1. HUMIRA [Suspect]
     Indication: PSORIASIS
     Route: 050
     Dates: start: 20080714
  2. TRETINOIN [Concomitant]
     Indication: PSORIASIS
     Dosage: APPLY DAILY TO AFFECTED AREAS
     Route: 061
  3. BENZOCLEN [Concomitant]
     Indication: PSORIASIS
     Dosage: APPLY DAILY TO AFFECTED AREAS
     Route: 061

REACTIONS (2)
  - INCORRECT DOSE ADMINISTERED [None]
  - WRONG TECHNIQUE IN DRUG USAGE PROCESS [None]
